FAERS Safety Report 5020635-5 (Version None)
Quarter: 2006Q2

REPORT INFORMATION
  Report Type: 
  Country: None (occurrence: None)
  Receive Date: 20060602
  Receipt Date: 20060418
  Transmission Date: 20061013
  Serious: Yes (Hospitalization)
  Sender: FDA-Public Use
  Company Number: US200605005486

PATIENT
  Sex: Female

DRUGS (6)
  1. CYMBALTA [Suspect]
     Indication: PAIN
     Dosage: 30 MG;  90 MG
     Dates: start: 20050101
  2. CYMBALTA [Suspect]
     Indication: PAIN
     Dosage: 30 MG;  90 MG
     Dates: start: 20060401
  3. AVINZA [Concomitant]
  4. NORVASC [Concomitant]
  5. ATENOLOL [Concomitant]
  6. GLUCOPHAGE [Concomitant]

REACTIONS (6)
  - CHOLECYSTECTOMY [None]
  - CONDITION AGGRAVATED [None]
  - CRYING [None]
  - DEPRESSION [None]
  - HEART RATE INCREASED [None]
  - HYPERTENSION [None]
